FAERS Safety Report 8602648-7 (Version None)
Quarter: 2012Q3

REPORT INFORMATION
  Report Type: 
  Country: None (occurrence: None)
  Receive Date: 20120817
  Receipt Date: 20120810
  Transmission Date: 20120928
  Serious: Yes (Hospitalization)
  Sender: FDA-Public Use
  Company Number: US-ROCHE-1038009

PATIENT
  Sex: Male
  Weight: 78 kg

DRUGS (3)
  1. COPEGUS [Suspect]
     Indication: HEPATITIS C
     Route: 048
     Dates: start: 20111026
  2. PEGASYS [Suspect]
     Indication: HEPATITIS C
     Route: 058
     Dates: start: 20111026
  3. BLINDED BI 201335 [Suspect]
     Indication: HEPATITIS C
     Route: 048
     Dates: start: 20111026

REACTIONS (3)
  - MUSCLE SPASMS [None]
  - ANAEMIA [None]
  - MOUTH ULCERATION [None]
